FAERS Safety Report 7313989-8 (Version None)
Quarter: 2011Q1

REPORT INFORMATION
  Report Type: 
  Country: None (occurrence: None)
  Receive Date: 20110225
  Receipt Date: 20110222
  Transmission Date: 20110831
  Serious: Yes (Death)
  Sender: FDA-Public Use
  Company Number: ES-CELGENEUS-144-C5013-11022191

PATIENT
  Sex: Male

DRUGS (40)
  1. BEMIPARINA [Concomitant]
     Route: 065
     Dates: end: 20100415
  2. BOLK [Concomitant]
     Route: 048
     Dates: start: 20090917
  3. BOLK [Concomitant]
     Route: 065
     Dates: end: 20100415
  4. NEBIVOLOL HCL [Concomitant]
     Route: 048
     Dates: start: 19910101
  5. METAMIZOL [Concomitant]
     Indication: BONE PAIN
     Route: 048
     Dates: start: 20090611
  6. LOPERAMIDE [Concomitant]
     Route: 048
     Dates: start: 20091004, end: 20091007
  7. ACETAMINOPHEN [Concomitant]
     Route: 065
     Dates: end: 20100415
  8. LOPERAMIDE [Concomitant]
     Route: 048
     Dates: start: 20091004, end: 20091007
  9. DICLOFENACO [Concomitant]
     Route: 048
     Dates: start: 20091202, end: 20091202
  10. CC-5013 [Suspect]
     Indication: MULTIPLE MYELOMA
     Route: 048
     Dates: start: 20090625
  11. DEXAMETHASONE [Suspect]
     Route: 065
     Dates: end: 20100415
  12. NEUPOGEN [Concomitant]
     Route: 058
     Dates: start: 20091029, end: 20091216
  13. ACETAMINOPHEN [Concomitant]
     Route: 048
     Dates: start: 20090611, end: 20090630
  14. FORTASEC [Concomitant]
     Route: 048
     Dates: start: 20091210
  15. DESKETOPROFENO [Concomitant]
     Indication: PAIN
     Route: 048
     Dates: start: 20090917, end: 20090923
  16. TAVANIC [Concomitant]
     Route: 048
     Dates: start: 20091112, end: 20091112
  17. CC-5013 [Suspect]
     Route: 048
     Dates: end: 20100415
  18. NEUPOGEN [Concomitant]
     Indication: NEUTROPENIA
     Route: 058
     Dates: start: 20090820, end: 20090824
  19. NEUPOGEN [Concomitant]
     Indication: PROPHYLAXIS
     Route: 058
     Dates: start: 20090827, end: 20090909
  20. NEUPOGEN [Concomitant]
     Route: 058
     Dates: start: 20100107, end: 20100204
  21. TRAMADOL HCL [Concomitant]
     Indication: BONE PAIN
     Route: 048
     Dates: start: 20090630
  22. ALDACTONE [Concomitant]
     Route: 048
     Dates: start: 20091217
  23. MANIDIPINO [Concomitant]
     Route: 048
     Dates: start: 19910101
  24. DICLOFENACO [Concomitant]
     Route: 048
     Dates: start: 20091112, end: 20091115
  25. SEGURIL [Concomitant]
     Route: 048
     Dates: start: 20090806, end: 20091217
  26. BEMIPARINA [Concomitant]
     Indication: THROMBOSIS PROPHYLAXIS
     Route: 058
     Dates: start: 20090625
  27. DOXAZOSINA [Concomitant]
     Route: 048
     Dates: start: 19910101
  28. ETORICOXIB [Concomitant]
     Indication: BONE PAIN
     Route: 048
     Dates: start: 20090630, end: 20090630
  29. DEXAMETHASONE [Suspect]
     Indication: MULTIPLE MYELOMA
     Route: 065
     Dates: start: 20090625
  30. NEUPOGEN [Concomitant]
     Route: 058
     Dates: start: 20090910, end: 20090916
  31. NEUPOGEN [Concomitant]
     Route: 058
     Dates: start: 20100211, end: 20100304
  32. TRAMADOL HCL [Concomitant]
     Route: 065
     Dates: end: 20100415
  33. ACETAMINOPHEN [Concomitant]
     Indication: BONE PAIN
     Route: 048
     Dates: start: 20090630
  34. ALDACTONE [Concomitant]
     Route: 065
     Dates: end: 20100415
  35. FORTASEC [Concomitant]
     Route: 065
     Dates: end: 20100415
  36. TELMISARTAN [Concomitant]
     Route: 048
     Dates: start: 19910101
  37. HIDROCLOROTIAZIDA [Concomitant]
     Route: 048
     Dates: start: 19910101
  38. OMEPRAZOLE [Concomitant]
     Indication: PROPHYLAXIS
     Route: 048
     Dates: start: 19910101
  39. CODEINA [Concomitant]
     Indication: BONE PAIN
     Route: 048
     Dates: start: 20090611, end: 20090630
  40. FUROSEMIDE [Concomitant]
     Route: 048
     Dates: start: 20090806, end: 20091216

REACTIONS (1)
  - LUNG ADENOCARCINOMA [None]
